FAERS Safety Report 25468314 (Version 2)
Quarter: 2025Q3

REPORT INFORMATION
  Report Type: Spontaneous
  Country: EU (occurrence: EU)
  Receive Date: 20250623
  Receipt Date: 20250701
  Transmission Date: 20251020
  Serious: Yes (Other)
  Sender: PFIZER
  Company Number: EU-PFIZER INC-PV202500074036

PATIENT
  Age: 63 Year
  Sex: Male

DRUGS (1)
  1. LINEZOLID [Suspect]
     Active Substance: LINEZOLID
     Indication: Enterococcal infection
     Dosage: 600 MG, 2X/DAY (EVERY 12 HOURS)

REACTIONS (3)
  - Toxicity to various agents [Unknown]
  - Platelet count decreased [Recovering/Resolving]
  - Drug level increased [Unknown]
